FAERS Safety Report 10412959 (Version 1)
Quarter: 2014Q3

REPORT INFORMATION
  Report Type: Spontaneous
  Country: US (occurrence: None)
  Receive Date: 20140826
  Receipt Date: 20140826
  Transmission Date: 20150326
  Serious: Yes (Other)
  Sender: FDA-Public Use
  Company Number: None

PATIENT
  Age: 53 Year
  Sex: Female
  Weight: 74.84 kg

DRUGS (1)
  1. OXYCODONE [Suspect]
     Active Substance: OXYCODONE
     Indication: PROCEDURAL PAIN
     Dosage: 1 PILL EVERY 4-6 HOURS TAKEN BY MOUTH
     Route: 048
     Dates: start: 20140824, end: 20140824

REACTIONS (2)
  - Product substitution issue [None]
  - Chest pain [None]

NARRATIVE: CASE EVENT DATE: 20140824
